FAERS Safety Report 7538169-2 (Version None)
Quarter: 2011Q2

REPORT INFORMATION
  Report Type: 
  Country: None (occurrence: None)
  Receive Date: 20110609
  Receipt Date: 20020320
  Transmission Date: 20111010
  Serious: Yes (Hospitalization)
  Sender: FDA-Public Use
  Company Number: PHBS2002JP03971

PATIENT
  Sex: Female
  Weight: 54.7 kg

DRUGS (7)
  1. ALDACTONE [Concomitant]
     Dates: start: 19930902
  2. COMELIAN [Concomitant]
     Dates: start: 19870629, end: 20010802
  3. PERDIPINE [Concomitant]
     Dates: start: 20000120, end: 20010802
  4. GLIMICRON [Concomitant]
     Dates: start: 19960404, end: 20010228
  5. GLAKAY [Concomitant]
     Dates: start: 19980402, end: 20010802
  6. LOCHOLEST [Suspect]
     Indication: HYPERCHOLESTEROLAEMIA
     Dosage: 20 MG/DAY
     Route: 048
     Dates: start: 19990715, end: 20010802
  7. GLIMICRON [Concomitant]
     Dates: start: 20010301, end: 20010802

REACTIONS (5)
  - HYPERTENSION [None]
  - WEIGHT DECREASED [None]
  - WHITE BLOOD CELL COUNT INCREASED [None]
  - DIABETES MELLITUS [None]
  - BACK PAIN [None]
